FAERS Safety Report 6231573-4 (Version None)
Quarter: 2009Q2

REPORT INFORMATION
  Report Type: 
  Country: None (occurrence: None)
  Receive Date: 20090612
  Receipt Date: 20090601
  Transmission Date: 20091009
  Serious: Yes (Other)
  Sender: FDA-Public Use
  Company Number: 230301K09CAN

PATIENT
  Sex: Female

DRUGS (1)
  1. REBIF [Suspect]
     Indication: MULTIPLE SCLEROSIS
     Dosage: 44 MCG, 3 IN 1 WEEKS
     Dates: start: 19970926

REACTIONS (3)
  - BREAST CANCER FEMALE [None]
  - CHRONIC LYMPHOCYTIC LEUKAEMIA [None]
  - OSTEOARTHRITIS [None]
